FAERS Safety Report 14031427 (Version 2)
Quarter: 2017Q4

REPORT INFORMATION
  Report Type: Spontaneous
  Country: IT (occurrence: IT)
  Receive Date: 20171002
  Receipt Date: 20171002
  Transmission Date: 20180321
  Serious: Yes (Death, Hospitalization)
  Sender: FDA-Public Use
  Company Number: IT-MYLANLABS-2017M1060783

PATIENT
  Age: 60 Year
  Sex: Male

DRUGS (2)
  1. DESMOPRESSIN [Suspect]
     Active Substance: DESMOPRESSIN
     Indication: OPTIC ISCHAEMIC NEUROPATHY
     Dosage: 2 MICROG/0.5 ML
     Route: 056
  2. BETAMETHASONE. [Concomitant]
     Active Substance: BETAMETHASONE
     Indication: OPTIC ISCHAEMIC NEUROPATHY
     Dosage: 2 MG/0.5 ML
     Route: 056

REACTIONS (5)
  - Cardiac arrest [Not Recovered/Not Resolved]
  - Acute myocardial infarction [Not Recovered/Not Resolved]
  - Cardio-respiratory arrest [Fatal]
  - Loss of consciousness [Unknown]
  - Off label use [Unknown]
